FAERS Safety Report 9001156 (Version 2)
Quarter: 2014Q1

REPORT INFORMATION
  Report Type: Spontaneous
  Country: US (occurrence: US)
  Receive Date: 20130107
  Receipt Date: 20140224
  Transmission Date: 20141002
  Serious: No
  Sender: FDA-Public Use
  Company Number: US-PFIZER INC-2013002391

PATIENT
  Age: 85 Year
  Sex: Male

DRUGS (5)
  1. INLYTA [Suspect]
     Indication: RENAL CANCER
     Dosage: 5 MG, UNK
     Dates: start: 20121213
  2. LOSARTAN POTASSIUM W/HYDROCHLOROTHIAZIDE [Concomitant]
     Dosage: UNK
  3. SERTRALINE HYDROCHLORIDE [Concomitant]
     Dosage: UNK
  4. TERAZOSIN HYDROCHLORIDE [Concomitant]
     Dosage: UNK
  5. AMLODIPINE BESYLATE [Concomitant]
     Dosage: UNK

REACTIONS (5)
  - Disease progression [Unknown]
  - Renal cancer [Unknown]
  - Pain in extremity [Unknown]
  - Dizziness [Unknown]
  - Asthenia [Unknown]
